FAERS Safety Report 24926214 (Version 1)
Quarter: 2025Q1

REPORT INFORMATION
  Report Type: Spontaneous
  Country: BR (occurrence: BR)
  Receive Date: 20250205
  Receipt Date: 20250205
  Transmission Date: 20250409
  Serious: Yes (Other)
  Sender: SANDOZ
  Company Number: BR-002147023-NVSC2024BR109555

PATIENT
  Age: 65 Year
  Sex: Female

DRUGS (8)
  1. KISQALI [Suspect]
     Active Substance: RIBOCICLIB
     Indication: Product used for unknown indication
     Route: 065
  2. ZOMETA [Suspect]
     Active Substance: ZOLEDRONIC ACID
     Route: 065
  3. ZOMETA [Suspect]
     Active Substance: ZOLEDRONIC ACID
     Route: 065
  4. ZOMETA [Suspect]
     Active Substance: ZOLEDRONIC ACID
     Indication: Product used for unknown indication
     Route: 065
     Dates: start: 20240723
  5. ZOMETA [Suspect]
     Active Substance: ZOLEDRONIC ACID
     Route: 065
  6. DIPYRONE [Concomitant]
     Active Substance: DIPYRONE
     Indication: Product used for unknown indication
     Route: 065
  7. FASLODEX [Concomitant]
     Active Substance: FULVESTRANT
     Indication: Product used for unknown indication
     Route: 065
  8. VITAMIN D [Concomitant]
     Active Substance: VITAMIN D NOS
     Indication: Product used for unknown indication
     Route: 065

REACTIONS (26)
  - Breast pain [Unknown]
  - Metastases to bone [Unknown]
  - Breast cancer [Unknown]
  - Illness [Unknown]
  - Crying [Recovered/Resolved]
  - Feeling of body temperature change [Recovered/Resolved]
  - Memory impairment [Unknown]
  - Fear [Recovered/Resolved]
  - Alopecia [Not Recovered/Not Resolved]
  - Feeling hot [Recovered/Resolved]
  - Aphthous ulcer [Recovered/Resolved]
  - Decreased immune responsiveness [Unknown]
  - Nipple pain [Unknown]
  - Anxiety [Unknown]
  - Discomfort [Recovered/Resolved]
  - Hypoaesthesia [Unknown]
  - Pain in extremity [Not Recovered/Not Resolved]
  - Constipation [Not Recovered/Not Resolved]
  - Dizziness [Recovered/Resolved]
  - Fatigue [Unknown]
  - Dizziness [Not Recovered/Not Resolved]
  - Chills [Recovered/Resolved with Sequelae]
  - Pain [Not Recovered/Not Resolved]
  - Back pain [Unknown]
  - Diarrhoea [Recovering/Resolving]
  - Product use issue [Unknown]

NARRATIVE: CASE EVENT DATE: 20240501
